FAERS Safety Report 6013385-X (Version None)
Quarter: 2008Q4

REPORT INFORMATION
  Report Type: 
  Country: None (occurrence: None)
  Receive Date: 20081219
  Receipt Date: 20081210
  Transmission Date: 20090506
  Serious: Yes (Other)
  Sender: FDA-Public Use
  Company Number: DE-ABBOTT-08P-062-0492481-00

PATIENT
  Sex: Male
  Weight: 78 kg

DRUGS (3)
  1. LIPANTHYL SUPRA [Suspect]
     Indication: HYPERTRIGLYCERIDAEMIA
     Route: 048
     Dates: start: 20080602, end: 20081201
  2. ACENOCOUMAROL [Suspect]
     Indication: MITRAL VALVE REPLACEMENT
     Dates: start: 20080202, end: 20081201
  3. PERINDOPRIL [Concomitant]
     Indication: MITRAL VALVE REPLACEMENT
     Route: 048
     Dates: start: 20070303

REACTIONS (1)
  - HAEMORRHAGIC DISORDER [None]
